FAERS Safety Report 7474658-7 (Version None)
Quarter: 2011Q2

REPORT INFORMATION
  Report Type: 
  Country: None (occurrence: None)
  Receive Date: 20110505
  Receipt Date: 20110423
  Transmission Date: 20111010
  Serious: Yes (Death)
  Sender: FDA-Public Use
  Company Number: JP-ACCORD-008367

PATIENT
  Sex: Male
  Weight: 79 kg

DRUGS (2)
  1. IRINOTECAN HCL [Suspect]
     Indication: GASTRIC CANCER
     Dosage: 140.00-MG
  2. CISPLATIN [Suspect]
     Indication: GASTRIC CANCER
     Dosage: 60.00-MG-1.00 TIMES PER-1.0DAYS

REACTIONS (3)
  - DISEASE PROGRESSION [None]
  - OFF LABEL USE [None]
  - METASTATIC GASTRIC CANCER [None]
